FAERS Safety Report 6155817-2 (Version None)
Quarter: 2009Q2

REPORT INFORMATION
  Report Type: 
  Country: None (occurrence: None)
  Receive Date: 20090415
  Receipt Date: 20090403
  Transmission Date: 20091009
  Serious: Yes (Life-Threatening, Hospitalization)
  Sender: FDA-Public Use
  Company Number: DE-PFIZER INC-2009188160

PATIENT

DRUGS (18)
  1. CAMPTOSAR [Suspect]
     Indication: COLON CANCER METASTATIC
     Dosage: 165 MG,
     Route: 042
     Dates: start: 20081212, end: 20090204
  2. OXALIPLATIN [Suspect]
     Indication: COLON CANCER METASTATIC
     Dosage: 170 MG, UNK
     Route: 042
     Dates: start: 20080701, end: 20081211
  3. FOLINIC ACID [Concomitant]
     Indication: COLON CANCER METASTATIC
     Dosage: 400 MG
     Route: 042
  4. FLUOROURACIL [Concomitant]
     Indication: COLON CANCER METASTATIC
     Dosage: UNK
     Route: 042
     Dates: start: 20080701
  5. CETUXIMAB [Concomitant]
     Indication: COLON CANCER METASTATIC
     Dosage: 1830 MG
  6. CETUXIMAB [Concomitant]
     Dosage: 515 MG, UNK
     Dates: start: 20081001
  7. BEVACIZUMAB [Concomitant]
     Indication: COLON CANCER METASTATIC
     Dosage: 430 MG
     Route: 042
     Dates: start: 20090101
  8. BELOC-ZOK MITE [Concomitant]
     Dosage: 1 DF, 1X/DAY
  9. DELIX PLUS [Concomitant]
     Dosage: 1 DF, 1X/DAY
  10. NEXIUM [Concomitant]
     Dosage: 1 DF, 1X/DAY
  11. MEDAZEPAM [Concomitant]
     Dosage: 1 DF, 3X/DAY
  12. RADEDORM [Concomitant]
     Dosage: 1 DF, 1X/DAY
  13. ACC LONG [Concomitant]
     Dosage: 1 DF, 1X/DAY
  14. PREDNISOLONE [Concomitant]
     Dosage: 1 DF, 1X/DAY
  15. KALINOR RETARD [Concomitant]
     Dosage: 1 DF, 2X/DAY
  16. MANINIL ^BERLIN-CHEMIE^ [Concomitant]
     Dosage: 1 DF, 1X/DAY
  17. SIOFOR [Concomitant]
     Dosage: 1 DF, 1X/DAY
  18. ACTRAPID [Concomitant]
     Dosage: UNK

REACTIONS (1)
  - PULMONARY TOXICITY [None]
